FAERS Safety Report 4357889-4 (Version None)
Quarter: 2004Q2

REPORT INFORMATION
  Report Type: 
  Country: None (occurrence: None)
  Receive Date: 20040510
  Receipt Date: 20040422
  Transmission Date: 20050107
  Serious: Yes (Other)
  Sender: FDA-Public Use
  Company Number: PHRM2004FR01598

PATIENT
  Age: 65 Year
  Sex: Male
  Weight: 73.0291 kg

DRUGS (1)
  1. VISUDYNE [Suspect]
     Indication: MACULAR DEGENERATION
     Dates: start: 20040121, end: 20040121

REACTIONS (3)
  - INTESTINAL OBSTRUCTION [None]
  - RENAL COLIC [None]
  - URINARY TRACT OBSTRUCTION [None]
